FAERS Safety Report 7341669-1 (Version None)
Quarter: 2011Q1

REPORT INFORMATION
  Report Type: 
  Country: None (occurrence: None)
  Receive Date: 20110309
  Receipt Date: 20110307
  Transmission Date: 20110831
  Serious: No
  Sender: FDA-Public Use
  Company Number: US-PFIZER INC-2011049609

PATIENT
  Sex: Male

DRUGS (1)
  1. CELEBREX [Suspect]
     Dosage: UNK

REACTIONS (6)
  - OROPHARYNGEAL PAIN [None]
  - CONSTIPATION [None]
  - PRURITUS [None]
  - DYSPNOEA [None]
  - CHEST DISCOMFORT [None]
  - TINNITUS [None]
